FAERS Safety Report 17780580 (Version 1)
Quarter: 2020Q2

REPORT INFORMATION
  Report Type: Report from Study
  Country: None (occurrence: BR)
  Receive Date: 20200514
  Receipt Date: 20200514
  Transmission Date: 20200714
  Serious: Yes (Other)
  Sender: FDA-Public Use
  Company Number: BR-ABBVIE-20K-020-3400129-00

PATIENT
  Age: 49 Year
  Sex: Female
  Weight: 49 kg

DRUGS (1)
  1. HUMIRA [Suspect]
     Active Substance: ADALIMUMAB
     Indication: ANKYLOSING SPONDYLITIS
     Dosage: 1 UNSPECIFIC DOSE
     Route: 058
     Dates: start: 20190328, end: 20191115

REACTIONS (11)
  - Throat lesion [Not Recovered/Not Resolved]
  - Renal failure [Recovering/Resolving]
  - Impaired healing [Not Recovered/Not Resolved]
  - Pharyngeal ulceration [Unknown]
  - Ankylosing spondylitis [Not Recovered/Not Resolved]
  - Immunodeficiency [Recovering/Resolving]
  - Oral disorder [Not Recovered/Not Resolved]
  - Mouth ulceration [Unknown]
  - Anaemia [Recovering/Resolving]
  - Drug ineffective [Unknown]
  - Anxiety [Unknown]

NARRATIVE: CASE EVENT DATE: 201911
